FAERS Safety Report 8282068-8 (Version None)
Quarter: 2012Q2

REPORT INFORMATION
  Report Type: 
  Country: None (occurrence: None)
  Receive Date: 20120413
  Receipt Date: 20120403
  Transmission Date: 20120825
  Serious: Yes (Hospitalization, Other)
  Sender: FDA-Public Use
  Company Number: FR-SANOFI-AVENTIS-2012SA024118

PATIENT
  Age: 68 Year
  Sex: Male

DRUGS (4)
  1. ERBITUX [Suspect]
     Dosage: 10 COURSES
     Route: 042
     Dates: start: 20110701, end: 20120101
  2. AVASTIN [Suspect]
     Dosage: 5 COURSES
     Route: 042
     Dates: start: 20110401, end: 20110701
  3. ALL OTHER THERAPEUTIC PRODUCTS [Suspect]
     Dosage: 15 COURSES
     Route: 042
     Dates: start: 20110401, end: 20120101
  4. OXALIPLATIN [Suspect]
     Dosage: 2 COURSES
     Route: 013
     Dates: start: 20111101, end: 20111220

REACTIONS (7)
  - OSTEITIS [None]
  - SKIN FISSURES [None]
  - OEDEMA PERIPHERAL [None]
  - OSTEOLYSIS [None]
  - PARONYCHIA [None]
  - LYMPHANGITIS [None]
  - FOLLICULITIS [None]
